FAERS Safety Report 24406199 (Version 2)
Quarter: 2024Q4

REPORT INFORMATION
  Report Type: Spontaneous
  Country: US (occurrence: US)
  Receive Date: 20241007
  Receipt Date: 20241125
  Transmission Date: 20250115
  Serious: Yes (Other)
  Sender: PFIZER
  Company Number: US-PFIZER INC-PV202400125070

PATIENT
  Age: 68 Year
  Sex: Male

DRUGS (8)
  1. SOMAVERT [Suspect]
     Active Substance: PEGVISOMANT
     Indication: Acromegaly
     Dosage: 20 MG, DAILY (OFF)
     Route: 058
  2. SOMAVERT [Suspect]
     Active Substance: PEGVISOMANT
     Indication: Gigantism
     Dosage: 40 MG LOADING DOSE (20-MG VIAL X2)
     Route: 058
  3. MYCAPSSA [Concomitant]
     Active Substance: OCTREOTIDE
     Dosage: 20 MG, ONCE A DAY (NOW OFF)
     Dates: start: 202401
  4. SANDOSTATIN LAR DEPOT [Concomitant]
     Active Substance: OCTREOTIDE ACETATE
     Indication: Somatostatin analogue therapy
     Dosage: EVERY 28 DAYS (OFF)
     Route: 030
  5. SIGNIFOR LAR [Concomitant]
     Active Substance: PASIREOTIDE PAMOATE
     Indication: Somatostatin analogue therapy
     Dosage: ONCE A MONTH (OFF)
  6. ALENDRONATE [Concomitant]
     Active Substance: ALENDRONATE SODIUM
     Indication: Somatostatin analogue therapy
     Dosage: OFF AFTER ABOUT 6 YEARS OF WEEKLY TAKING
  7. FORTEO [Concomitant]
     Active Substance: TERIPARATIDE
     Indication: Somatostatin analogue therapy
     Dosage: 20MCG DAILY INJECTIONS (OFF AND ON)
  8. LANREOTIDE [Concomitant]
     Active Substance: LANREOTIDE
     Dosage: EVERY 28 DAYS (OFF)
     Route: 030

REACTIONS (21)
  - Scrotal abscess [Recovered/Resolved]
  - Fatigue [Unknown]
  - Contusion [Unknown]
  - Hyperhidrosis [Unknown]
  - Exercise tolerance decreased [Unknown]
  - Dyspnoea [Unknown]
  - Heart rate irregular [Unknown]
  - Dyspepsia [Unknown]
  - Micturition urgency [Unknown]
  - Pollakiuria [Unknown]
  - Back pain [Unknown]
  - Joint range of motion decreased [Unknown]
  - Arthralgia [Unknown]
  - Joint swelling [Unknown]
  - Muscle spasms [Unknown]
  - Muscular weakness [Unknown]
  - Memory impairment [Unknown]
  - Polyuria [Unknown]
  - Temperature intolerance [Unknown]
  - Abscess limb [Recovered/Resolved]
  - Osteoporosis [Unknown]
